FAERS Safety Report 8281441-1 (Version None)
Quarter: 2012Q2

REPORT INFORMATION
  Report Type: 
  Country: None (occurrence: None)
  Receive Date: 20120413
  Receipt Date: 20120404
  Transmission Date: 20120825
  Serious: Yes (Other)
  Sender: FDA-Public Use
  Company Number: JP-B.I. PHARMACEUTICALS,INC./RIDGEFIELD-2012-EU-01784GD

PATIENT
  Age: 71 Year
  Sex: Male

DRUGS (3)
  1. DABIGATRAN [Suspect]
     Indication: ATRIAL FIBRILLATION
     Dosage: 220 MG
     Route: 048
  2. DABIGATRAN [Suspect]
     Dosage: 300 MG
     Route: 048
  3. ANTIBIOTICS [Suspect]
     Indication: ATYPICAL MYCOBACTERIAL INFECTION

REACTIONS (3)
  - DRUG INEFFECTIVE [None]
  - CEREBRAL INFARCTION [None]
  - INTRACARDIAC THROMBUS [None]
